FAERS Safety Report 20181551 (Version 1)
Quarter: 2021Q4

REPORT INFORMATION
  Report Type: Spontaneous
  Country: US (occurrence: None)
  Receive Date: 20211213
  Receipt Date: 20211213
  Transmission Date: 20220303
  Serious: No
  Sender: FDA-Public Use
  Company Number: None

PATIENT
  Sex: Female

DRUGS (11)
  1. AMBRISENTAN [Suspect]
     Active Substance: AMBRISENTAN
     Indication: Pulmonary hypertension
     Dosage: FREQUENCY : DAILY;?
     Route: 048
     Dates: start: 20211007
  2. CARVEDILOL [Concomitant]
     Active Substance: CARVEDILOL
  3. CLONAZEPAM [Concomitant]
     Active Substance: CLONAZEPAM
  4. DIGOXIN TAB [Concomitant]
  5. FUROSEMIDE TAB [Concomitant]
  6. LEVETIRACETA TAB [Concomitant]
  7. PIRMELLA TAB [Concomitant]
  8. SILDENAFIL [Concomitant]
     Active Substance: SILDENAFIL
  9. SILDENAFIL CITRATE [Concomitant]
     Active Substance: SILDENAFIL CITRATE
  10. SYNTHROID TAB [Concomitant]
  11. WARFARIN TAB [Concomitant]

REACTIONS (2)
  - Adverse drug reaction [None]
  - Therapy cessation [None]
